FAERS Safety Report 25572887 (Version 3)
Quarter: 2025Q3

REPORT INFORMATION
  Report Type: Spontaneous
  Country: US (occurrence: US)
  Receive Date: 20250717
  Receipt Date: 20250730
  Transmission Date: 20251021
  Serious: No
  Sender: SANOFI AVENTIS
  Company Number: US-SA-2025SA200244

PATIENT
  Age: 83 Year
  Sex: Male

DRUGS (4)
  1. KEVZARA [Suspect]
     Active Substance: SARILUMAB
     Indication: Polymyalgia rheumatica
     Dosage: 200 MG, QOW
     Route: 058
     Dates: start: 202507
  2. PREDNISONE [Suspect]
     Active Substance: PREDNISONE
     Dates: end: 2025
  3. PREDNISONE [Suspect]
     Active Substance: PREDNISONE
     Dates: start: 202506, end: 2025
  4. PREDNISONE [Suspect]
     Active Substance: PREDNISONE
     Dates: start: 202507

REACTIONS (6)
  - Pain [Not Recovered/Not Resolved]
  - Hypokinesia [Unknown]
  - Hyperaesthesia teeth [Unknown]
  - Gait disturbance [Unknown]
  - Dry skin [Unknown]
  - Skin exfoliation [Unknown]

NARRATIVE: CASE EVENT DATE: 20250701
